FAERS Safety Report 12993891 (Version 3)
Quarter: 2017Q2

REPORT INFORMATION
  Report Type: Spontaneous
  Country: US (occurrence: US)
  Receive Date: 20161202
  Receipt Date: 20170630
  Transmission Date: 20170830
  Serious: No
  Sender: FDA-Public Use
  Company Number: US-JNJFOC-20161023812

PATIENT
  Age: 61 Year
  Sex: Male

DRUGS (6)
  1. SEROQUEL [Concomitant]
     Active Substance: QUETIAPINE FUMARATE
     Indication: MENTAL DISORDER
     Dosage: BEGAN QUETIAPINE FUMARATE PRIOR TO JAN-2010
     Route: 065
  2. RISPERDAL CONSTA [Suspect]
     Active Substance: RISPERIDONE
     Indication: MENTAL DISORDER
     Dosage: BEGAN RISPERIDONE LAI PRIOR TO JAN-2010
     Route: 030
  3. RISPERDAL [Concomitant]
     Active Substance: RISPERIDONE
     Indication: MENTAL DISORDER
     Dosage: BEGAN RISPERIDONE PRIOR TO JAN-2010
     Route: 065
  4. COGENTIN [Concomitant]
     Active Substance: BENZTROPINE MESYLATE
     Indication: MENTAL DISORDER
     Dosage: BEGAN BENZTROPINE MESILATE PRIOR TO JAN-2010
     Route: 065
  5. DEPAKOTE [Concomitant]
     Active Substance: DIVALPROEX SODIUM
     Indication: MENTAL DISORDER
     Dosage: BEGAN VALPROATE SEMISODIUM PRIOR TO JAN-2010
     Route: 065
  6. DEPAKOTE [Concomitant]
     Active Substance: DIVALPROEX SODIUM
     Indication: MENTAL DISORDER
     Route: 065

REACTIONS (3)
  - Inappropriate schedule of drug administration [Unknown]
  - Product reconstitution quality issue [Unknown]
  - Product quality issue [Unknown]

NARRATIVE: CASE EVENT DATE: 20161019
